FAERS Safety Report 23874441 (Version 1)
Quarter: 2024Q2

REPORT INFORMATION
  Report Type: Spontaneous
  Country: PT (occurrence: PT)
  Receive Date: 20240520
  Receipt Date: 20240520
  Transmission Date: 20240715
  Serious: Yes (Hospitalization)
  Sender: FDA-Public Use
  Company Number: PT-MYLANLABS-2024M1045123

PATIENT
  Age: 57 Year
  Sex: Male

DRUGS (1)
  1. TENOFOVIR DISOPROXIL [Suspect]
     Active Substance: TENOFOVIR DISOPROXIL
     Indication: HIV infection
     Dosage: UNK
     Route: 065

REACTIONS (3)
  - Fanconi syndrome acquired [Recovering/Resolving]
  - Renal impairment [Recovering/Resolving]
  - Hypotension [Recovering/Resolving]
